FAERS Safety Report 4950460-2 (Version None)
Quarter: 2006Q1

REPORT INFORMATION
  Report Type: 
  Country: None (occurrence: None)
  Receive Date: 20060316
  Receipt Date: 20060301
  Transmission Date: 20060701
  Serious: Yes (Death, Hospitalization)
  Sender: FDA-Public Use
  Company Number: 2006-00187

PATIENT
  Age: 77 Year
  Sex: Female
  Weight: 50 kg

DRUGS (3)
  1. VELCADE [Suspect]
     Indication: MULTIPLE MYELOMA
     Dosage: 1.87 MG, INTRAVENOUS
     Route: 042
     Dates: start: 20060102, end: 20060112
  2. DEXAMETHASONE [Suspect]
     Dosage: 40.00 MG, INTRAVENOUS
     Route: 042
     Dates: start: 20060102, end: 20060113
  3. SERTRALINE HCL [Suspect]
     Dosage: 50.00 MG, QD
     Dates: end: 20060120

REACTIONS (3)
  - IMMUNOSUPPRESSION [None]
  - INAPPROPRIATE ANTIDIURETIC HORMONE SECRETION [None]
  - PNEUMONIA CYTOMEGALOVIRAL [None]
